FAERS Safety Report 5084173-6 (Version None)
Quarter: 2006Q3

REPORT INFORMATION
  Report Type: 
  Country: None (occurrence: None)
  Receive Date: 20060821
  Receipt Date: 20051026
  Transmission Date: 20061208
  Serious: Yes (Hospitalization)
  Sender: FDA-Public Use
  Company Number: US-BRISTOL-MYERS SQUIBB COMPANY-13158415

PATIENT
  Age: 87 Year
  Sex: Male

DRUGS (1)
  1. TEQUIN [Suspect]
     Route: 042
     Dates: start: 20051025

REACTIONS (2)
  - DYSPNOEA [None]
  - WHEEZING [None]
